FAERS Safety Report 15210975 (Version 1)
Quarter: 2018Q3

REPORT INFORMATION
  Report Type: Spontaneous
  Country: GB (occurrence: GB)
  Receive Date: 20180728
  Receipt Date: 20180728
  Transmission Date: 20181010
  Serious: Yes (Other)
  Sender: FDA-Public Use
  Company Number: GB-TEVA-2018-GB-930687

PATIENT
  Age: 86 Year
  Sex: Male
  Weight: 92 kg

DRUGS (14)
  1. FUROSEMIDE. [Concomitant]
     Active Substance: FUROSEMIDE
     Dosage: IN THE MORNING
     Dates: start: 20170628
  2. ZAPAIN [Concomitant]
     Active Substance: ACETAMINOPHEN\CODEINE PHOSPHATE
     Dosage: (CO?CODAMOL 30/500) ONE OR TWO CAPLETS TO BE TA...
     Dates: start: 20170628, end: 20180607
  3. COLCHICINE. [Concomitant]
     Active Substance: COLCHICINE
     Dosage: FOR 4 DAYS (DO NOT TAKE STATIN DURING THIS COURSE)
     Dates: start: 20180621
  4. HYDROCORTISONE. [Concomitant]
     Active Substance: HYDROCORTISONE
     Dosage: APPLY TO THE AFFECTED AREA AS DIRECTED
     Dates: start: 20180410, end: 20180508
  5. DERMOL [Concomitant]
     Active Substance: BENZALKONIUM CHLORIDE\CHLORHEXIDINE HYDROCHLORIDE\ISOPROPYL MYRISTATE\PARAFFIN
     Dates: start: 20180410, end: 20180508
  6. DIGOXIN. [Concomitant]
     Active Substance: DIGOXIN
     Dates: start: 20170628
  7. ALLOPURINOL. [Suspect]
     Active Substance: ALLOPURINOL
     Dates: start: 20180621
  8. FLUCLOXACILLIN [Concomitant]
     Active Substance: FLUCLOXACILLIN
     Dates: start: 20180410, end: 20180417
  9. SILDENAFIL. [Concomitant]
     Active Substance: SILDENAFIL
     Dosage: TAKE HALF OR ONE TABLET AS DIRECTED
     Dates: start: 20170628
  10. FEBUXOSTAT. [Concomitant]
     Active Substance: FEBUXOSTAT
     Dosage: INTOLERANT OF ALLOPURINOL)
     Dates: start: 20180621
  11. GLYCERYL TRINITRATE [Concomitant]
     Active Substance: NITROGLYCERIN
     Dosage: SPRAY 1 OR 2 PUFFS UNDER THE TONGUE
     Dates: start: 20170628
  12. RIVAROXABAN [Concomitant]
     Active Substance: RIVAROXABAN
     Dates: start: 20170628
  13. CANDESARTAN. [Concomitant]
     Active Substance: CANDESARTAN
     Dates: start: 20170628
  14. COCODAMOL [Concomitant]
     Active Substance: ACETAMINOPHEN\CODEINE PHOSPHATE
     Dosage: ONE OR TWO TABLETS TO BE TAKEN EVERY 4?6 HOURS
     Dates: start: 20180607

REACTIONS (1)
  - Pruritus generalised [Recovered/Resolved]

NARRATIVE: CASE EVENT DATE: 20180621
